FAERS Safety Report 10671132 (Version 1)
Quarter: 2014Q4

REPORT INFORMATION
  Report Type: Spontaneous
  Country: US (occurrence: None)
  Receive Date: 20141219
  Receipt Date: 20141219
  Transmission Date: 20150529
  Serious: Yes (Other)
  Sender: FDA-Public Use
  Company Number: ORE201412-000379

PATIENT
  Age: 25 Year
  Sex: Female
  Weight: 58.97 kg

DRUGS (2)
  1. ZUBSOLV [Suspect]
     Active Substance: BUPRENORPHINE HYDROCHLORIDE\NALOXONE HYDROCHLORIDE
     Indication: DRUG DEPENDENCE
     Dosage: 2 IN 1 D
     Dates: start: 201402
  2. EFFEXOR [Concomitant]
     Active Substance: VENLAFAXINE HYDROCHLORIDE

REACTIONS (2)
  - Cardiac failure [None]
  - Aortic valve disease [None]

NARRATIVE: CASE EVENT DATE: 20141209
